FAERS Safety Report 9881109 (Version 1)
Quarter: 2014Q1

REPORT INFORMATION
  Report Type: Spontaneous
  Country: RU (occurrence: None)
  Receive Date: 20140205
  Receipt Date: 20140205
  Transmission Date: 20141002
  Serious: Yes (Death)
  Sender: FDA-Public Use
  Company Number: FK201400344

PATIENT
  Age: 64 Year
  Sex: Female
  Weight: 72 kg

DRUGS (6)
  1. PROPOFOL 1% MCT FRESENIUS (PROPOFOL) (PROPOFOL) [Suspect]
     Indication: INDUCTION OF ANAESTHESIA
     Dosage: 600, 3 AMPOULES 20 ML 10/MG/ML, INTRAVENOUS (NOT OTHERWISE SPECIFIED)
     Route: 042
     Dates: start: 20130731, end: 20130731
  2. FENTANYL (FENTANYL) (FENTANYL) [Concomitant]
  3. DROPERIDOL (DROPERIDOL) (DROPERIDOL) [Concomitant]
  4. SUXAMETHONIUM CHLORIDE (SUXAMETHINIUM CHLORIDE) (SUXAMETHONIUM CHLORIDE)` [Concomitant]
  5. PIPECURONIUM (PIPECURONIUM) [Concomitant]
  6. AMIODARONE (AMIODARONE) (AMIDORONE) [Concomitant]

REACTIONS (5)
  - Coma [None]
  - Renal impairment [None]
  - Hepatic atrophy [None]
  - Post procedural complication [None]
  - Shock [None]
